FAERS Safety Report 9471257 (Version 2)
Quarter: 2013Q3

REPORT INFORMATION
  Report Type: Report from Study
  Country: SK (occurrence: SK)
  Receive Date: 20130822
  Receipt Date: 20130822
  Transmission Date: 20140515
  Serious: Yes (Hospitalization)
  Sender: FDA-Public Use
  Company Number: PHHO2008SK13446

PATIENT
  Age: 75 Year
  Sex: Female

DRUGS (1)
  1. ALISKIREN [Suspect]
     Indication: CARDIOVASCULAR DISORDER
     Route: 048
     Dates: start: 20080611, end: 20081010

REACTIONS (5)
  - Renal failure [Recovered/Resolved]
  - Hyperkalaemia [Recovered/Resolved]
  - Bradyarrhythmia [Recovered/Resolved]
  - Transient ischaemic attack [Recovered/Resolved]
  - Concomitant disease progression [Recovered/Resolved]
